FAERS Safety Report 6224935-2 (Version None)
Quarter: 2009Q2

REPORT INFORMATION
  Report Type: 
  Country: None (occurrence: None)
  Receive Date: 20090612
  Receipt Date: 20090402
  Transmission Date: 20091009
  Serious: No
  Sender: FDA-Public Use
  Company Number: US-ABBOTT-09P-163-0566309-00

PATIENT
  Sex: Female

DRUGS (6)
  1. HUMIRA [Suspect]
     Indication: PSORIATIC ARTHROPATHY
     Route: 058
     Dates: start: 20080501
  2. BENICAR [Concomitant]
     Indication: HYPERTENSION
     Dosage: UNKNOWN
  3. SOMA [Concomitant]
     Indication: NECK PAIN
     Dosage: UNKNOWN
  4. SOMA [Concomitant]
     Indication: SPINAL FUSION SURGERY
  5. VOLTAREN [Concomitant]
     Indication: SPINAL FUSION SURGERY
     Dosage: UNKNOWN
  6. TRAMADOL HCL [Concomitant]
     Indication: PAIN
     Dosage: UNKNOWN

REACTIONS (1)
  - PRURITUS [None]
